FAERS Safety Report 10529966 (Version 1)
Quarter: 2014Q4

REPORT INFORMATION
  Report Type: Spontaneous
  Country: US (occurrence: None)
  Receive Date: 20141020
  Receipt Date: 20141020
  Transmission Date: 20150528
  Serious: No
  Sender: FDA-Public Use
  Company Number: None

PATIENT
  Age: 19 Year
  Sex: Female
  Weight: 59.88 kg

DRUGS (1)
  1. IMPLANON [Suspect]
     Active Substance: ETONOGESTREL
     Dates: start: 20141004

REACTIONS (4)
  - Loss of consciousness [None]
  - Headache [None]
  - Malaise [None]
  - Abdominal pain upper [None]

NARRATIVE: CASE EVENT DATE: 20141009
